FAERS Safety Report 9842951 (Version 1)
Quarter: 2013Q4

REPORT INFORMATION
  Report Type: Spontaneous
  Country: US (occurrence: None)
  Receive Date: 20131211
  Receipt Date: 20131211
  Transmission Date: 20140711
  Serious: No
  Sender: FDA-Public Use
  Company Number: ALL1-2012-04545

PATIENT
  Sex: Female

DRUGS (1)
  1. LIALDA [Suspect]
     Indication: COLITIS ULCERATIVE
     Dosage: UNK, UNKNOWN, ORAL
     Route: 048
     Dates: start: 2012, end: 201209

REACTIONS (2)
  - Diarrhoea [None]
  - Colitis ulcerative [None]
